FAERS Safety Report 5853373-7 (Version None)
Quarter: 2008Q3

REPORT INFORMATION
  Report Type: 
  Country: None (occurrence: None)
  Receive Date: 20080821
  Receipt Date: 20080613
  Transmission Date: 20090109
  Serious: Yes (Hospitalization, Other)
  Sender: FDA-Public Use
  Company Number: US-PFIZER INC-2008067692

PATIENT
  Sex: Female

DRUGS (2)
  1. DILANTIN [Suspect]
  2. PHENYTOIN [Suspect]

REACTIONS (3)
  - BLINDNESS [None]
  - DISABILITY [None]
  - STEVENS-JOHNSON SYNDROME [None]
